FAERS Safety Report 6837110-5 (Version None)
Quarter: 2010Q3

REPORT INFORMATION
  Report Type: 
  Country: None (occurrence: None)
  Receive Date: 20100713
  Receipt Date: 20070505
  Transmission Date: 20110219
  Serious: No
  Sender: FDA-Public Use
  Company Number: US-PFIZER INC-2007036438

PATIENT
  Sex: Female
  Weight: 54.545 kg

DRUGS (6)
  1. CHANTIX [Suspect]
     Indication: SMOKING CESSATION THERAPY
     Dates: start: 20070423
  2. SYNTHROID [Concomitant]
  3. BENICAR [Concomitant]
  4. ATORVASTATIN CALCIUM [Concomitant]
  5. BENZONATATE [Concomitant]
  6. XANAX [Concomitant]

REACTIONS (5)
  - CONSTIPATION [None]
  - FATIGUE [None]
  - NAUSEA [None]
  - SOMNOLENCE [None]
  - VOMITING [None]
